FAERS Safety Report 4870667-2 (Version None)
Quarter: 2006Q1

REPORT INFORMATION
  Report Type: 
  Country: None (occurrence: None)
  Receive Date: 20060103
  Receipt Date: 20051219
  Transmission Date: 20060701
  Serious: Yes (Hospitalization)
  Sender: FDA-Public Use
  Company Number: FR-JNJFOC-20051203832

PATIENT
  Sex: Female
  Weight: 54.2 kg

DRUGS (3)
  1. BLINDED; GALANTAMINE HBR [Suspect]
     Route: 048
     Dates: start: 20051116, end: 20051208
  2. PLACEBO [Suspect]
     Route: 048
     Dates: start: 20051116, end: 20051208
  3. DEROXAT [Concomitant]
     Indication: ANXIETY
     Route: 065
     Dates: start: 20041031

REACTIONS (1)
  - FEMORAL NECK FRACTURE [None]
